FAERS Safety Report 22029794 (Version 1)
Quarter: 2023Q1

REPORT INFORMATION
  Report Type: Spontaneous
  Country: US (occurrence: US)
  Receive Date: 20230223
  Receipt Date: 20230223
  Transmission Date: 20230418
  Serious: No
  Sender: FDA-Public Use
  Company Number: US-GUERBET / LLC-US-20220101

PATIENT
  Age: 44 Year
  Sex: Female
  Weight: 103 kg

DRUGS (3)
  1. DOTAREM [Suspect]
     Active Substance: GADOTERATE MEGLUMINE
     Indication: Magnetic resonance imaging abdominal
     Route: 042
     Dates: start: 20221110, end: 20221110
  2. Normal Saline (NS) [Concomitant]
     Indication: Product used for unknown indication
     Route: 042
     Dates: start: 20221110, end: 20221110
  3. Normal Saline (NS) [Concomitant]
     Route: 042
     Dates: start: 20221110, end: 20221110

REACTIONS (1)
  - Contrast media allergy [Recovered/Resolved]

NARRATIVE: CASE EVENT DATE: 20221110
